FAERS Safety Report 9167459 (Version 2)
Quarter: 2013Q2

REPORT INFORMATION
  Report Type: Spontaneous
  Country: US (occurrence: US)
  Receive Date: 20130318
  Receipt Date: 20130401
  Transmission Date: 20140414
  Serious: Yes (Hospitalization, Other)
  Sender: FDA-Public Use
  Company Number: US-JNJFOC-20130302973

PATIENT
  Age: 76 Year
  Sex: Male

DRUGS (9)
  1. XARELTO [Suspect]
     Indication: DEEP VEIN THROMBOSIS
     Route: 048
     Dates: start: 20121219
  2. ISOSORBIDE DINITRATE [Concomitant]
     Route: 065
  3. TYLENOL [Concomitant]
     Indication: ANORECTAL DISORDER
     Dosage: 3 TIMES A DAY AS NEEDED RECTAL
     Route: 054
  4. DILTIAZEM [Concomitant]
     Route: 065
  5. KEPPRA [Concomitant]
     Dosage: WHICH IS 10 ML
     Route: 065
  6. ZOFRAN [Concomitant]
     Indication: VOMITING
     Route: 065
  7. ZOFRAN [Concomitant]
     Indication: NAUSEA
     Route: 065
  8. PROTONIX [Concomitant]
     Dosage: PER TUBE DAILY
     Route: 065
  9. ALBUTEROL [Concomitant]
     Dosage: EVERY NIGHT HOURS AS NEEDED
     Route: 055

REACTIONS (4)
  - Haemorrhage intracranial [Recovering/Resolving]
  - Anaemia [Recovered/Resolved]
  - Cardiac failure congestive [Recovered/Resolved]
  - Urinary tract infection [Recovered/Resolved]
